FAERS Safety Report 13188138 (Version 10)
Quarter: 2017Q4

REPORT INFORMATION
  Report Type: Spontaneous
  Country: US (occurrence: US)
  Receive Date: 20170206
  Receipt Date: 20171211
  Transmission Date: 20180320
  Serious: Yes (Congenital Anomaly, Other)
  Sender: FDA-Public Use
  Company Number: PHEH2017US003699

PATIENT
  Sex: Male

DRUGS (1)
  1. ZOFRAN [Suspect]
     Active Substance: ONDANSETRON HYDROCHLORIDE
     Indication: FOETAL EXPOSURE DURING PREGNANCY
     Dosage: MOTHER^S DOSE: 4 MG, QD
     Route: 064

REACTIONS (54)
  - Congenital pulmonary valve disorder [Unknown]
  - Granulomatosis with polyangiitis [Unknown]
  - Pleural effusion [Unknown]
  - Foetal exposure during pregnancy [Unknown]
  - Rhinorrhoea [Unknown]
  - Diarrhoea [Unknown]
  - Fallot^s tetralogy [Unknown]
  - Left-to-right cardiac shunt [Unknown]
  - Laevocardia [Unknown]
  - Neonatal anoxia [Unknown]
  - Pulmonary congestion [Unknown]
  - Nephrolithiasis [Unknown]
  - Pharyngitis [Unknown]
  - Asthma [Unknown]
  - Atrial septal defect [Unknown]
  - Pulmonary valve stenosis [Unknown]
  - Seizure [Unknown]
  - Rhinitis allergic [Unknown]
  - Cardiomegaly [Unknown]
  - Cardiac murmur [Unknown]
  - Ulna fracture [Unknown]
  - Encephalopathy neonatal [Unknown]
  - Pulmonary artery dilatation [Unknown]
  - Pericardial effusion [Unknown]
  - Wheezing [Unknown]
  - Obstructive airways disorder [Unknown]
  - Dysphagia [Unknown]
  - Hypertension [Unknown]
  - Radius fracture [Unknown]
  - Heart disease congenital [Unknown]
  - Pulmonary hypoplasia [Unknown]
  - Right aortic arch [Unknown]
  - Brain injury [Unknown]
  - Pulmonary valve incompetence [Unknown]
  - Procedural haemorrhage [Unknown]
  - Right ventricular hypertrophy [Unknown]
  - Nephropathy [Unknown]
  - Tachypnoea [Unknown]
  - Vomiting [Unknown]
  - Atelectasis [Unknown]
  - Ventricular septal defect [Unknown]
  - Respiratory distress [Unknown]
  - Upper respiratory tract infection [Unknown]
  - Cough [Unknown]
  - Congenital pulmonary valve atresia [Unknown]
  - Premature baby [Unknown]
  - Right ventricular hypertension [Unknown]
  - Gastrooesophageal reflux disease [Unknown]
  - Pyrexia [Unknown]
  - Dysmorphism [Unknown]
  - Tricuspid valve incompetence [Unknown]
  - Haemothorax [Unknown]
  - Bundle branch block right [Unknown]
  - Attention deficit/hyperactivity disorder [Unknown]

NARRATIVE: CASE EVENT DATE: 20050329
